FAERS Safety Report 7905790-9 (Version None)
Quarter: 2011Q4

REPORT INFORMATION
  Report Type: 
  Country: None (occurrence: None)
  Receive Date: 20111110
  Receipt Date: 20111103
  Transmission Date: 20120403
  Serious: Yes (Other)
  Sender: FDA-Public Use
  Company Number: US-JNJFOC-20111102560

PATIENT
  Age: 70 Year
  Sex: Female

DRUGS (6)
  1. CARDIZEM [Concomitant]
     Route: 048
  2. PLAVIX [Concomitant]
     Route: 048
  3. NUCYNTA [Suspect]
     Indication: PAIN
     Dosage: 3 TIMES A DAY
     Route: 048
  4. TRENTAL [Concomitant]
     Route: 048
  5. DIOVAN [Concomitant]
     Route: 048
  6. LASIX [Concomitant]
     Route: 048

REACTIONS (1)
  - VAGINAL HAEMORRHAGE [None]
